FAERS Safety Report 22538422 (Version 1)
Quarter: 2023Q2

REPORT INFORMATION
  Report Type: Report from Study
  Country: US (occurrence: US)
  Receive Date: 20230609
  Receipt Date: 20230609
  Transmission Date: 20230722
  Serious: Yes (Other)
  Sender: FDA-Public Use
  Company Number: US-002147023-NVSC2023US131576

PATIENT

DRUGS (4)
  1. TASIGNA [Suspect]
     Active Substance: NILOTINIB
     Indication: Product used for unknown indication
     Dosage: UNK
     Route: 065
  2. HYDROXYUREA [Suspect]
     Active Substance: HYDROXYUREA
     Indication: Product used for unknown indication
     Dosage: UNK
     Route: 065
  3. SPRYCEL [Suspect]
     Active Substance: DASATINIB
     Indication: Product used for unknown indication
     Dosage: UNK
     Route: 065
  4. BOSULIF [Suspect]
     Active Substance: BOSUTINIB MONOHYDRATE
     Indication: Product used for unknown indication
     Dosage: UNK
     Route: 065

REACTIONS (3)
  - Pleural effusion [Unknown]
  - Hypertension [Recovering/Resolving]
  - Drug ineffective [Unknown]
